FAERS Safety Report 17499368 (Version 3)
Quarter: 2020Q2

REPORT INFORMATION
  Report Type: Report from Study
  Country: CA (occurrence: CA)
  Receive Date: 20200304
  Receipt Date: 20200421
  Transmission Date: 20200713
  Serious: Yes (Other)
  Sender: FDA-Public Use
  Company Number: CA-ACTELION-A-US2018-166208

PATIENT
  Sex: Female

DRUGS (22)
  1. VITAMIN B1 [Concomitant]
     Active Substance: THIAMINE HYDROCHLORIDE
  2. VITAMIN D [Concomitant]
     Active Substance: VITAMIN D NOS
  3. LYRICA [Concomitant]
     Active Substance: PREGABALIN
  4. CALCIUM CARBONATE. [Concomitant]
     Active Substance: CALCIUM CARBONATE
  5. SYNTHROID [Concomitant]
     Active Substance: LEVOTHYROXINE SODIUM
  6. LANTUS [Concomitant]
     Active Substance: INSULIN GLARGINE
  7. LASIX [Concomitant]
     Active Substance: FUROSEMIDE
  8. VITAMIN B12 [Concomitant]
     Active Substance: CYANOCOBALAMIN
  9. VITAMIN C [Concomitant]
     Active Substance: ASCORBIC ACID
  10. RED BLOOD CELLS [Concomitant]
     Active Substance: HUMAN RED BLOOD CELL
     Dosage: UNK, PRN
  11. FUROSEMIDE. [Concomitant]
     Active Substance: FUROSEMIDE
  12. IRON SUCROSE [Concomitant]
     Active Substance: IRON SUCROSE
  13. METOLAZONE. [Concomitant]
     Active Substance: METOLAZONE
  14. SPIRONOLACTONE. [Concomitant]
     Active Substance: SPIRONOLACTONE
  15. METOPROLOL. [Concomitant]
     Active Substance: METOPROLOL
  16. INSULIN HUMAN [Concomitant]
     Active Substance: INSULIN HUMAN
  17. REPLAVITE [Concomitant]
  18. OPSUMIT [Suspect]
     Active Substance: MACITENTAN
     Indication: PULMONARY ARTERIAL HYPERTENSION
     Dosage: 10 MG, UNK
     Route: 048
     Dates: start: 20151204
  19. ULORIC [Concomitant]
     Active Substance: FEBUXOSTAT
  20. ADCIRCA [Concomitant]
     Active Substance: TADALAFIL
  21. MAGNESIUM [Concomitant]
     Active Substance: MAGNESIUM
  22. HUMALOG [Concomitant]
     Active Substance: INSULIN LISPRO

REACTIONS (4)
  - Haemodialysis [Not Recovered/Not Resolved]
  - Haemoglobin decreased [Unknown]
  - Renal failure [Not Recovered/Not Resolved]
  - Transfusion [Unknown]
